FAERS Safety Report 9947076 (Version 1)
Quarter: 2014Q1

REPORT INFORMATION
  Report Type: Report from Study
  Country: US (occurrence: US)
  Receive Date: 20140303
  Receipt Date: 20140303
  Transmission Date: 20141002
  Serious: No
  Sender: FDA-Public Use
  Company Number: US-ABBVIE-13P-163-1059740-00

PATIENT
  Age: 12 Year
  Sex: Female

DRUGS (9)
  1. HUMIRA [Suspect]
     Indication: JUVENILE IDIOPATHIC ARTHRITIS
     Dates: start: 20130206
  2. METHOTREXATE [Concomitant]
     Indication: PRODUCT USED FOR UNKNOWN INDICATION
  3. NAPROSYN [Concomitant]
     Indication: PAIN
  4. FOLIC ACID [Concomitant]
     Indication: PRODUCT USED FOR UNKNOWN INDICATION
  5. ZANTAC [Concomitant]
     Indication: PRODUCT USED FOR UNKNOWN INDICATION
  6. ZOFRAN [Concomitant]
     Indication: NAUSEA
     Dosage: 30 MINUTES BEFORE METHOTREXATE
  7. GLUCOSAMINE [Concomitant]
     Indication: VITAMIN SUPPLEMENTATION
  8. TROPICAMIDE [Concomitant]
     Indication: UVEITIS
  9. PREDNISOLONE [Concomitant]
     Indication: UVEITIS
     Dosage: AT SLEEP

REACTIONS (4)
  - Constipation [Recovered/Resolved]
  - Uveitis [Recovered/Resolved]
  - Dysuria [Recovered/Resolved]
  - Musculoskeletal stiffness [Recovered/Resolved]
